FAERS Safety Report 6378659-1 (Version None)
Quarter: 2009Q3

REPORT INFORMATION
  Report Type: 
  Country: None (occurrence: None)
  Receive Date: 20090928
  Receipt Date: 20090917
  Transmission Date: 20100115
  Serious: Yes (Hospitalization)
  Sender: FDA-Public Use
  Company Number: FR-AMGEN-US365607

PATIENT
  Sex: Male

DRUGS (2)
  1. ENBREL [Suspect]
     Indication: RHEUMATOID ARTHRITIS
     Route: 064
     Dates: start: 20051101, end: 20081222
  2. SOLUPRED [Concomitant]
     Indication: RHEUMATOID ARTHRITIS
     Dosage: 10 MG TOTAL DAILY
     Route: 048
     Dates: start: 20050101

REACTIONS (1)
  - FOETAL GROWTH RETARDATION [None]
